FAERS Safety Report 8512872-X (Version None)
Quarter: 2012Q3

REPORT INFORMATION
  Report Type: 
  Country: None (occurrence: None)
  Receive Date: 20120705
  Receipt Date: 20120626
  Transmission Date: 20120928
  Serious: Yes (Other)
  Sender: FDA-Public Use
  Company Number: DSA_55086_2012

PATIENT
  Age: 50 Year
  Sex: Male

DRUGS (1)
  1. FLAGYL [Suspect]
     Indication: GASTRIC INFECTION
     Dosage: DF
     Dates: end: 20100529

REACTIONS (1)
  - ENCEPHALOPATHY [None]
